FAERS Safety Report 17544056 (Version 1)
Quarter: 2020Q1

REPORT INFORMATION
  Report Type: Spontaneous
  Country: US (occurrence: US)
  Receive Date: 20200316
  Receipt Date: 20200316
  Transmission Date: 20200409
  Serious: No
  Sender: FDA-Public Use
  Company Number: US-STRIDES ARCOLAB LIMITED-2019SP011827

PATIENT
  Age: 32 Year
  Sex: Female

DRUGS (21)
  1. CIPROFLOXACIN. [Suspect]
     Active Substance: CIPROFLOXACIN
     Indication: LYME DISEASE
     Dosage: UNK, QOD
     Route: 065
  2. AZITHROMYCIN ANHYDROUS. [Concomitant]
     Active Substance: AZITHROMYCIN ANHYDROUS
     Indication: MYCOBACTERIAL INFECTION
     Dosage: 500 MILLIGRAM DAILY
     Route: 042
  3. PIPERACILINA - TAZOBACTAM [Concomitant]
     Indication: PNEUMONIA
     Dosage: UNK
     Route: 065
  4. CIPROFLOXACIN. [Suspect]
     Active Substance: CIPROFLOXACIN
     Indication: MYCOBACTERIAL INFECTION
     Dosage: 400 MILLIGRAM, EVERY 12 HRS
     Route: 042
  5. RIFABUTIN. [Concomitant]
     Active Substance: RIFABUTIN
     Indication: LYME DISEASE
     Dosage: UNK
     Route: 048
  6. MEROPENEM. [Concomitant]
     Active Substance: MEROPENEM
     Indication: MYCOBACTERIAL INFECTION
     Dosage: 1 GRAM, EVERY 8 HOURS
     Route: 042
  7. TIGECYCLINE. [Concomitant]
     Active Substance: TIGECYCLINE
     Indication: LYME DISEASE
     Dosage: UNK
     Route: 042
  8. METRONIDAZOLE. [Suspect]
     Active Substance: METRONIDAZOLE
     Indication: LYME DISEASE
     Dosage: UNK
     Route: 048
  9. LEUCOVORIN                         /00566701/ [Concomitant]
     Active Substance: LEUCOVORIN
     Indication: LYME DISEASE
     Dosage: UNK
     Route: 048
  10. AZITHROMYCIN ANHYDROUS. [Concomitant]
     Active Substance: AZITHROMYCIN ANHYDROUS
     Indication: EVIDENCE BASED TREATMENT
     Dosage: 250 MILLIGRAM, QD
     Route: 048
  11. CIPROFLOXACIN. [Suspect]
     Active Substance: CIPROFLOXACIN
     Indication: EVIDENCE BASED TREATMENT
     Dosage: 500 MILLIGRAM, BID
     Route: 048
  12. AZITHROMYCIN ANHYDROUS. [Concomitant]
     Active Substance: AZITHROMYCIN ANHYDROUS
     Indication: PNEUMONIA
     Dosage: UNK
     Route: 065
  13. PIPERACILINA - TAZOBACTAM [Concomitant]
     Indication: SEPTIC EMBOLUS
  14. SULFAMETHOXAZOLE W/TRIMIPRAMINE [Concomitant]
     Indication: EVIDENCE BASED TREATMENT
  15. VANCOMYCIN [Concomitant]
     Active Substance: VANCOMYCIN
     Indication: PNEUMONIA
     Dosage: UNK
     Route: 065
  16. PYRIMETHAMINE [Concomitant]
     Active Substance: PYRIMETHAMINE
     Indication: LYME DISEASE
     Dosage: UNK
     Route: 048
  17. SULFAMETHOXAZOLE W/TRIMIPRAMINE [Concomitant]
     Indication: MYCOBACTERIAL INFECTION
     Dosage: 800 MG/160 MG TWICE DAILY
     Route: 048
  18. MEROPENEM. [Concomitant]
     Active Substance: MEROPENEM
     Indication: LYME DISEASE
     Dosage: UNK, EVERY OTHER DAY
     Route: 042
  19. VANCOMYCIN [Concomitant]
     Active Substance: VANCOMYCIN
     Indication: SEPTIC EMBOLUS
  20. IVERMECTIN. [Concomitant]
     Active Substance: IVERMECTIN
     Indication: LYME DISEASE
     Dosage: UNK
     Route: 048
  21. CLINDAMYCIN. [Concomitant]
     Active Substance: CLINDAMYCIN
     Indication: LYME DISEASE
     Dosage: UNK
     Route: 042

REACTIONS (1)
  - Off label use [Unknown]
